FAERS Safety Report 9397861 (Version 3)
Quarter: 2014Q4

REPORT INFORMATION
  Report Type: Report from Study
  Country: DE (occurrence: DE)
  Receive Date: 20130712
  Receipt Date: 20141030
  Transmission Date: 20150529
  Serious: Yes (Death, Hospitalization)
  Sender: FDA-Public Use
  Company Number: DE-ROCHE-1245460

PATIENT
  Sex: Male
  Weight: 80 kg

DRUGS (8)
  1. 5-FU [Concomitant]
     Active Substance: FLUOROURACIL
     Indication: COLON CANCER
     Route: 065
     Dates: start: 20130305, end: 20130528
  2. KEVATRIL [Concomitant]
     Active Substance: GRANISETRON HYDROCHLORIDE
     Route: 042
     Dates: start: 20130305, end: 20130528
  3. 5-FU [Concomitant]
     Active Substance: FLUOROURACIL
     Indication: RECTAL CANCER
  4. FOLIC ACID. [Concomitant]
     Active Substance: FOLIC ACID
     Indication: RECTAL CANCER
  5. AVASTIN [Suspect]
     Active Substance: BEVACIZUMAB
     Indication: RECTAL CANCER
  6. AVASTIN [Suspect]
     Active Substance: BEVACIZUMAB
     Indication: COLON CANCER
     Dosage: PERMENENTLY DISCONTINUED ON 30/APR/2013
     Route: 065
     Dates: start: 20130305, end: 20130528
  7. DEXAMETHASON [Concomitant]
     Active Substance: DEXAMETHASONE
     Route: 042
     Dates: start: 20130305, end: 20130528
  8. FOLIC ACID. [Concomitant]
     Active Substance: FOLIC ACID
     Indication: COLON CANCER
     Route: 065
     Dates: start: 20130305, end: 20130528

REACTIONS (5)
  - General physical health deterioration [Fatal]
  - Pyrexia [Fatal]
  - Mechanical ileus [Fatal]
  - Vomiting [Fatal]
  - Vertigo [Fatal]

NARRATIVE: CASE EVENT DATE: 20130517
